FAERS Safety Report 8911984 (Version 2)
Quarter: 2012Q4

REPORT INFORMATION
  Report Type: 
  Country: ES (occurrence: ES)
  Receive Date: 20121116
  Receipt Date: 20121205
  Transmission Date: 20130627
  Serious: Yes (Hospitalization)
  Sender: FDA-Public Use
  Company Number: ES-SHIRE-ALL1-2012-05574

PATIENT
  Age: 88 Year
  Sex: Female

DRUGS (6)
  1. XAGRID [Suspect]
     Indication: ESSENTIAL THROMBOCYTHAEMIA
     Dosage: 1 mg, 2x/day:bid
     Route: 048
     Dates: start: 2010, end: 20120901
  2. FUROSEMIDE [Concomitant]
     Indication: HYPERTENSION
     Dosage: 80 mg, 1x/day:qd
     Route: 048
  3. AMIODARONA                         /00133101/ [Concomitant]
     Indication: ARRHYTHMIA
     Dosage: 20 mg, 1x/day:qd
     Route: 048
  4. ALLOPURINOL [Concomitant]
     Indication: PROPHYLAXIS
     Dosage: 300 mg, 1x/day:qd
     Route: 048
  5. EUCREAS [Concomitant]
     Indication: DIABETES MELLITUS
     Dosage: UNK (50/850 mg), Unknown
     Route: 048
  6. SINTROM [Concomitant]
     Indication: ATRIAL FIBRILLATION
     Dosage: UNK UNK, Unknown
     Route: 065

REACTIONS (1)
  - Cardiac failure [Unknown]
